FAERS Safety Report 7529744-X (Version None)
Quarter: 2011Q2

REPORT INFORMATION
  Report Type: 
  Country: None (occurrence: None)
  Receive Date: 20110520
  Receipt Date: 20100401
  Transmission Date: 20111010
  Serious: Yes (Disabling)
  Sender: FDA-Public Use
  Company Number: US-JNJFOC-2010007961

PATIENT
  Age: 70 Year
  Sex: Female
  Weight: 68.9467 kg

DRUGS (7)
  1. EZETIMIBE [Concomitant]
  2. FENOFIBRIC ACID (FENOFIBRATE) [Concomitant]
  3. SERTRALINE HYDROCHLORIDE [Concomitant]
  4. CELECOXIB [Concomitant]
  5. VISINE EYE DROPS [Suspect]
     Indication: EYE PRURITUS
     Dosage: DAILY DOSE TEXT: ONE DROP IN EACH EYE ONCE A DAY
     Route: 031
  6. NIFEDIPINE [Concomitant]
  7. ATORVASTATIN [Concomitant]

REACTIONS (2)
  - EYE IRRITATION [None]
  - CONDITION AGGRAVATED [None]
